FAERS Safety Report 10924032 (Version 2)
Quarter: 2015Q2

REPORT INFORMATION
  Report Type: Spontaneous
  Country: US (occurrence: US)
  Receive Date: 20150318
  Receipt Date: 20150526
  Transmission Date: 20150821
  Serious: No
  Sender: FDA-Public Use
  Company Number: US-JNJFOC-20140502868

PATIENT
  Age: 57 Year
  Sex: Female
  Weight: 54.43 kg

DRUGS (9)
  1. MAGNESIUM [Concomitant]
     Active Substance: MAGNESIUM
     Route: 065
  2. ZINC [Concomitant]
     Active Substance: ZINC\ZINC CHLORIDE
     Route: 065
  3. HOLY BASIL [Concomitant]
     Route: 065
  4. OIL OF OREGANO [Concomitant]
     Route: 065
  5. PATRIOT (ITRACONAZOLE) [Suspect]
     Active Substance: ITRACONAZOLE
     Indication: SPOROTRICHOSIS
     Route: 048
     Dates: start: 20140317
  6. METHYLSULFONYLMETHANE [Concomitant]
     Active Substance: DIMETHYL SULFONE
     Route: 065
  7. MULTIVITAMINS [Concomitant]
     Active Substance: VITAMINS
     Route: 065
  8. SELENIUM [Concomitant]
     Active Substance: SELENIUM
     Route: 065
  9. CALCIUM [Concomitant]
     Active Substance: CALCIUM
     Route: 065

REACTIONS (4)
  - Constipation [Recovering/Resolving]
  - Fatigue [Recovering/Resolving]
  - Depression [Recovering/Resolving]
  - Therapeutic response decreased [Not Recovered/Not Resolved]

NARRATIVE: CASE EVENT DATE: 2014
